FAERS Safety Report 7008863-0 (Version None)
Quarter: 2010Q3

REPORT INFORMATION
  Report Type: 
  Country: None (occurrence: None)
  Receive Date: 20100923
  Receipt Date: 20100913
  Transmission Date: 20110219
  Serious: Yes (Hospitalization)
  Sender: FDA-Public Use
  Company Number: US-BIOGENIDEC-2010BI023934

PATIENT
  Age: 51 Year
  Sex: Female
  Weight: 86 kg

DRUGS (15)
  1. TYSABRI [Suspect]
     Indication: MULTIPLE SCLEROSIS
     Route: 042
     Dates: start: 20090609
  2. BACLOFEN [Concomitant]
  3. FLEXERIL [Concomitant]
  4. ZANAFLEX [Concomitant]
  5. ZANAFLEX [Concomitant]
     Route: 048
  6. OXYBUTYNIN [Concomitant]
  7. FLUOXETINE [Concomitant]
  8. NUVIGIL [Concomitant]
  9. MELOXICAM [Concomitant]
  10. NORCO [Concomitant]
     Indication: PAIN
  11. IMITREX [Concomitant]
     Indication: MIGRAINE
  12. EXCEDRIN (MIGRAINE) [Concomitant]
     Indication: TENSION HEADACHE
  13. FISH OIL [Concomitant]
     Route: 048
  14. CALCIUM [Concomitant]
  15. VITAMIN D [Concomitant]

REACTIONS (1)
  - LUMBAR RADICULOPATHY [None]
